FAERS Safety Report 23194960 (Version 1)
Quarter: 2023Q4

REPORT INFORMATION
  Report Type: Report from Study
  Country: AU (occurrence: AU)
  Receive Date: 20231117
  Receipt Date: 20231117
  Transmission Date: 20240110
  Serious: Yes (Hospitalization)
  Sender: FDA-Public Use
  Company Number: AU-ALXN-202311GLO000225AU

PATIENT
  Age: 34 Year
  Sex: Female
  Weight: 42 kg

DRUGS (20)
  1. SOLIRIS [Suspect]
     Active Substance: ECULIZUMAB
     Indication: Atypical haemolytic uraemic syndrome
     Dosage: 900 MILLIGRAM
     Route: 042
     Dates: start: 20221004, end: 20221111
  2. SOLIRIS [Suspect]
     Active Substance: ECULIZUMAB
     Dosage: 1200 MILLIGRAM
     Route: 042
     Dates: start: 20221115
  3. PREDNISOLONE [Concomitant]
     Active Substance: PREDNISOLONE
     Indication: Immunosuppression
     Dosage: VARIABLE
     Route: 048
     Dates: start: 20121125
  4. PANTOPRAZOLE [Concomitant]
     Active Substance: PANTOPRAZOLE
     Indication: Gastrooesophageal reflux disease
     Dosage: 40
     Route: 048
     Dates: start: 20160712
  5. ASPIRIN [Concomitant]
     Active Substance: ASPIRIN
     Indication: Thrombosis
     Dosage: 100
     Route: 048
     Dates: start: 20210830, end: 2021
  6. FAMOTIDINE [Concomitant]
     Active Substance: FAMOTIDINE
     Indication: Gastrooesophageal reflux disease
     Dosage: 20
     Route: 048
     Dates: start: 20210905
  7. Exprex [Concomitant]
     Indication: Anaemia prophylaxis
     Dosage: 8000
     Route: 058
     Dates: start: 20210906, end: 2021
  8. PROTAPHANE [Concomitant]
     Active Substance: INSULIN HUMAN
     Indication: Diabetes mellitus
     Dosage: UNK
     Route: 058
     Dates: start: 20210914
  9. CINACALCET ACCORD [Concomitant]
     Indication: Hyperparathyroidism
     Dosage: 60
     Route: 048
     Dates: start: 20220413
  10. CUVITRU [Concomitant]
     Active Substance: HUMAN IMMUNOGLOBULIN G
     Indication: Primary immunodeficiency syndrome
     Dosage: 10
     Route: 058
     Dates: start: 20220415
  11. CHOLECALCIFEROL [Concomitant]
     Active Substance: CHOLECALCIFEROL
     Indication: Vitamin supplementation
     Dosage: 25
     Route: 048
     Dates: start: 20220626
  12. DORNASE ALFA [Concomitant]
     Active Substance: DORNASE ALFA
     Indication: Cystic fibrosis
     Dosage: 2.5
     Route: 055
     Dates: start: 20220721
  13. FUROSEMIDE [Concomitant]
     Active Substance: FUROSEMIDE
     Indication: Fluid retention
     Dosage: 20
     Route: 048
     Dates: start: 20230809
  14. APIXABAN [Concomitant]
     Active Substance: APIXABAN
     Indication: Thrombosis
     Dosage: 5
     Route: 048
     Dates: start: 20230906
  15. COVID-19 vaccine [Concomitant]
     Indication: Prophylaxis
     Dosage: UNK
     Route: 030
  16. NICOTINAMIDE [Concomitant]
     Active Substance: NIACINAMIDE
     Indication: Skin cancer
     Dosage: 500
     Route: 048
  17. TACROLIMUS [Concomitant]
     Active Substance: TACROLIMUS
     Indication: Immunosuppression
     Dosage: VARIABLE
     Route: 048
  18. CREON [Concomitant]
     Active Substance: PANCRELIPASE AMYLASE\PANCRELIPASE LIPASE\PANCRELIPASE PROTEASE
     Indication: Pancreatic enzymes
     Dosage: VARIABLE
     Route: 048
     Dates: start: 201211
  19. FIASP [Concomitant]
     Active Substance: INSULIN ASPART
     Indication: Diabetes mellitus
     Dosage: UNK
     Route: 058
     Dates: start: 202005
  20. MYCOPHENOLATE SODIUM [Concomitant]
     Active Substance: MYCOPHENOLATE SODIUM
     Indication: Immunosuppression
     Dosage: 360
     Route: 048
     Dates: start: 202307

REACTIONS (1)
  - Ulna fracture [Not Recovered/Not Resolved]

NARRATIVE: CASE EVENT DATE: 20231029
